FAERS Safety Report 5957417-3 (Version None)
Quarter: 2008Q4

REPORT INFORMATION
  Report Type: 
  Country: None (occurrence: None)
  Receive Date: 20081118
  Receipt Date: 20081111
  Transmission Date: 20090506
  Serious: Yes (Life-Threatening, Hospitalization, Other)
  Sender: FDA-Public Use
  Company Number: JP-MERCK-0808USA05458

PATIENT
  Age: 81 Year
  Sex: Female
  Weight: 57 kg

DRUGS (12)
  1. SINGULAIR [Suspect]
     Indication: ASTHMA
     Route: 048
     Dates: start: 20070801, end: 20080815
  2. URSO 250 [Suspect]
     Indication: CHOLELITHIASIS
     Route: 048
     Dates: start: 19890101, end: 20080815
  3. MUCODYNE [Suspect]
     Indication: ASTHMA
     Route: 048
     Dates: start: 20070101, end: 20080814
  4. ASPIRIN [Concomitant]
     Indication: CEREBRAL INFARCTION
     Route: 048
     Dates: start: 20031201, end: 20080815
  5. RENIVEZE [Suspect]
     Indication: HYPERTENSION
     Route: 048
     Dates: start: 20080416, end: 20080815
  6. UNIPHYL LA [Suspect]
     Indication: ASTHMA
     Route: 048
     Dates: start: 20070801, end: 20080815
  7. CLARITIN [Suspect]
     Indication: RHINITIS ALLERGIC
     Route: 048
     Dates: start: 20070801, end: 20080815
  8. CLARITIN [Suspect]
     Indication: ASTHMA
     Route: 048
     Dates: start: 20070801, end: 20080815
  9. AMLODIN [Suspect]
     Indication: HYPERTENSION
     Route: 048
     Dates: start: 20030101, end: 20080415
  10. INTAL [Concomitant]
     Dates: start: 20070801
  11. PULMICORT-100 [Concomitant]
     Indication: ASTHMA
     Dates: start: 20070801
  12. MOHRUS [Suspect]
     Indication: BACK PAIN
     Route: 061
     Dates: start: 19940101, end: 20080815

REACTIONS (2)
  - LEUKOCYTOCLASTIC VASCULITIS [None]
  - TUBULOINTERSTITIAL NEPHRITIS [None]
